FAERS Safety Report 11044798 (Version 1)
Quarter: 2015Q2

REPORT INFORMATION
  Report Type: Spontaneous
  Country: US (occurrence: None)
  Receive Date: 20150415
  Receipt Date: 20150415
  Transmission Date: 20150821
  Serious: Yes (Life-Threatening, Hospitalization)
  Sender: FDA-Public Use
  Company Number: 2015/025

PATIENT
  Age: 28 Year
  Sex: Female

DRUGS (1)
  1. CEPHALEXIN (NO PREF. NAME) 500 MG [Suspect]
     Active Substance: CEPHALEXIN
     Indication: OROPHARYNGEAL PAIN

REACTIONS (11)
  - Anaemia [None]
  - Mixed liver injury [None]
  - Ascites [None]
  - Hepatosplenomegaly [None]
  - Drug reaction with eosinophilia and systemic symptoms [None]
  - Lymphadenopathy [None]
  - Epstein-Barr virus test positive [None]
  - Simplex virus test positive [None]
  - International normalised ratio increased [None]
  - Thrombocytopenia [None]
  - Hyperferritinaemia [None]
